FAERS Safety Report 21338497 (Version 1)
Quarter: 2022Q3

REPORT INFORMATION
  Report Type: Spontaneous
  Country: US (occurrence: US)
  Receive Date: 20220915
  Receipt Date: 20220915
  Transmission Date: 20221027
  Serious: Yes (Hospitalization, Other)
  Sender: FDA-Public Use
  Company Number: US-NOVARTISPH-NVSC2022US202709

PATIENT
  Age: 68 Year
  Sex: Male

DRUGS (2)
  1. CARBOPLATIN [Suspect]
     Active Substance: CARBOPLATIN
     Indication: Transitional cell carcinoma
     Dosage: 75 MG/M2, CYCLIC (DOSE REDUCED)
     Route: 065
     Dates: start: 202105
  2. GEMCITABINE [Suspect]
     Active Substance: GEMCITABINE
     Indication: Transitional cell carcinoma
     Dosage: 1000 MG/M2, CYCLIC  (FULL DOSE)
     Route: 065
     Dates: start: 202105

REACTIONS (2)
  - Escherichia sepsis [Recovered/Resolved]
  - Product use in unapproved indication [Unknown]
